FAERS Safety Report 19794910 (Version 1)
Quarter: 2021Q3

REPORT INFORMATION
  Report Type: Spontaneous
  Country: FR (occurrence: FR)
  Receive Date: 20210907
  Receipt Date: 20210907
  Transmission Date: 20211014
  Serious: Yes (Other)
  Sender: FDA-Public Use
  Company Number: FR-ALLERGAN-2131159US

PATIENT
  Sex: Female

DRUGS (1)
  1. FLURBIPROFEN SODIUM ? BP [Suspect]
     Active Substance: FLURBIPROFEN SODIUM
     Indication: PRODUCT USED FOR UNKNOWN INDICATION

REACTIONS (1)
  - Anaphylactic shock [Unknown]
